FAERS Safety Report 16893906 (Version 1)
Quarter: 2019Q4

REPORT INFORMATION
  Report Type: Spontaneous
  Country: US (occurrence: US)
  Receive Date: 20191008
  Receipt Date: 20191008
  Transmission Date: 20200122
  Serious: No
  Sender: FDA-Public Use
  Company Number: US-NEUROCRINE BIOSCIENCES INC.-2019NBI02835

PATIENT
  Age: 41 Year
  Sex: Female

DRUGS (3)
  1. METHADONE [Interacting]
     Active Substance: METHADONE HYDROCHLORIDE
     Indication: PRODUCT USED FOR UNKNOWN INDICATION
  2. INGREZZA [Suspect]
     Active Substance: VALBENAZINE
     Indication: TARDIVE DYSKINESIA
     Dates: start: 2019, end: 2019
  3. INGREZZA [Interacting]
     Active Substance: VALBENAZINE
     Dates: start: 201906, end: 2019

REACTIONS (2)
  - Therapeutic product effect incomplete [None]
  - Drug interaction [Unknown]

NARRATIVE: CASE EVENT DATE: 2019
